FAERS Safety Report 5537979-0 (Version None)
Quarter: 2007Q4

REPORT INFORMATION
  Report Type: 
  Country: None (occurrence: None)
  Receive Date: 20071207
  Receipt Date: 20071127
  Transmission Date: 20080405
  Serious: Yes (Other)
  Sender: FDA-Public Use
  Company Number: US-PFIZER INC-2007100493

PATIENT
  Age: 32 Year
  Sex: Male
  Weight: 72.6 kg

DRUGS (1)
  1. DILANTIN [Suspect]
     Dosage: DAILY DOSE:400MG

REACTIONS (1)
  - ANTICONVULSANT DRUG LEVEL INCREASED [None]
